FAERS Safety Report 12761132 (Version 1)
Quarter: 2016Q3

REPORT INFORMATION
  Report Type: Spontaneous
  Country: US (occurrence: US)
  Receive Date: 20160920
  Receipt Date: 20160920
  Transmission Date: 20161109
  Serious: No
  Sender: FDA-Public Use
  Company Number: US-BRISTOL-MYERS SQUIBB COMPANY-BMS-2016-074217

PATIENT
  Sex: Male
  Weight: 97.52 kg

DRUGS (1)
  1. OPDIVO [Suspect]
     Active Substance: NIVOLUMAB
     Indication: SQUAMOUS CELL CARCINOMA OF LUNG
     Dosage: 280 MG, Q2WK
     Route: 065
     Dates: start: 201607

REACTIONS (2)
  - Fatigue [Unknown]
  - Muscular weakness [Unknown]
